FAERS Safety Report 11337020 (Version 2)
Quarter: 2015Q3

REPORT INFORMATION
  Report Type: Spontaneous
  Country: US (occurrence: US)
  Receive Date: 20150804
  Receipt Date: 20150810
  Transmission Date: 20151125
  Serious: No
  Sender: FDA-Public Use
  Company Number: US-ELI_LILLY_AND_COMPANY-US201507010690

PATIENT
  Age: 14 Year
  Sex: Male

DRUGS (2)
  1. HUMATROPE [Suspect]
     Active Substance: SOMATROPIN
     Indication: GROWTH HORMONE DEFICIENCY
     Dosage: 1.5 MG, QD
     Route: 065
     Dates: start: 20150213
  2. HUMATROPE [Suspect]
     Active Substance: SOMATROPIN
     Dosage: 1.5 MG, QD
     Route: 065
     Dates: start: 20150213

REACTIONS (1)
  - Incorrect dose administered [Unknown]

NARRATIVE: CASE EVENT DATE: 20150728
